FAERS Safety Report 25605878 (Version 4)
Quarter: 2025Q4

REPORT INFORMATION
  Report Type: Spontaneous
  Country: US (occurrence: US)
  Receive Date: 20250725
  Receipt Date: 20251013
  Transmission Date: 20260117
  Serious: Yes (Other)
  Sender: SANOFI AVENTIS
  Company Number: US-SA-2025SA211910

PATIENT
  Age: 64 Year
  Sex: Male

DRUGS (6)
  1. ALPROLIX [Suspect]
     Active Substance: EFTRENONACOG ALFA
     Indication: Factor IX deficiency
     Dosage: 2500 IU, QOD AND AS NEEDED
     Route: 042
     Dates: start: 202310
  2. ALPROLIX [Suspect]
     Active Substance: EFTRENONACOG ALFA
     Indication: Factor IX deficiency
     Dosage: 2500 IU, QOD AND AS NEEDED
     Route: 042
     Dates: start: 202310
  3. ALPROLIX [Suspect]
     Active Substance: EFTRENONACOG ALFA
     Dosage: 2500 IU, POST OP AS NEEDED
     Route: 042
     Dates: start: 202310
  4. ALPROLIX [Suspect]
     Active Substance: EFTRENONACOG ALFA
     Dosage: 2500 IU, POST OP AS NEEDED
     Route: 042
     Dates: start: 202310
  5. NUBEQA [Concomitant]
     Active Substance: DAROLUTAMIDE
  6. DOCETAXEL [Concomitant]
     Active Substance: DOCETAXEL

REACTIONS (4)
  - Urinary bladder haemorrhage [Unknown]
  - Haemorrhage urinary tract [Unknown]
  - Post procedural haemorrhage [Unknown]
  - Blood urine present [Unknown]

NARRATIVE: CASE EVENT DATE: 20250708
